FAERS Safety Report 13467988 (Version 3)
Quarter: 2017Q2

REPORT INFORMATION
  Report Type: Report from Study
  Country: KR (occurrence: KR)
  Receive Date: 20170421
  Receipt Date: 20170601
  Transmission Date: 20170830
  Serious: Yes (Death, Hospitalization)
  Sender: FDA-Public Use
  Company Number: KR-EISAI MEDICAL RESEARCH-EC-2017-026882

PATIENT
  Age: 61 Year
  Sex: Female
  Weight: 56.2 kg

DRUGS (3)
  1. HALAVEN [Suspect]
     Active Substance: ERIBULIN MESYLATE
     Indication: BREAST CANCER METASTATIC
     Route: 041
     Dates: start: 20161010, end: 20161010
  2. METOCLOPRAMIDE HANWHA INJ [Concomitant]
  3. HALAVEN [Suspect]
     Active Substance: ERIBULIN MESYLATE
     Route: 041
     Dates: start: 20161028, end: 20170202

REACTIONS (4)
  - Febrile neutropenia [Recovered/Resolved]
  - Pneumonia [Recovered/Resolved]
  - Liver function test increased [Recovered/Resolved]
  - Pleural effusion [Fatal]

NARRATIVE: CASE EVENT DATE: 20161014
